FAERS Safety Report 17350295 (Version 1)
Quarter: 2020Q1

REPORT INFORMATION
  Report Type: Spontaneous
  Country: US (occurrence: US)
  Receive Date: 20200130
  Receipt Date: 20200130
  Transmission Date: 20200409
  Serious: No
  Sender: FDA-Public Use
  Company Number: US-JNJFOC-20200114337

PATIENT
  Age: 89 Year
  Sex: Female
  Weight: 64.01 kg

DRUGS (1)
  1. PEPCID AC [Suspect]
     Active Substance: FAMOTIDINE
     Indication: ULCER
     Dosage: 1 PILL ONLY ONCE, LAST DOSE ADMIN 07-JAN-2020
     Route: 048
     Dates: start: 20200107

REACTIONS (3)
  - Abdominal pain upper [Not Recovered/Not Resolved]
  - Dizziness [Recovered/Resolved]
  - Product use in unapproved indication [Unknown]

NARRATIVE: CASE EVENT DATE: 20200107
